FAERS Safety Report 23508068 (Version 1)
Quarter: 2024Q1

REPORT INFORMATION
  Report Type: Report from Study
  Country: US (occurrence: US)
  Receive Date: 20240209
  Receipt Date: 20240209
  Transmission Date: 20240410
  Serious: Yes (Death, Other)
  Sender: FDA-Public Use
  Company Number: US-IPSEN Group, Research and Development-2024-02248

PATIENT
  Age: 65 Year
  Sex: Female

DRUGS (1)
  1. ONIVYDE [Suspect]
     Active Substance: IRINOTECAN HYDROCHLORIDE
     Indication: Pancreatic carcinoma
     Dosage: 129 MG, EVERY 14 DAYS
     Route: 042
     Dates: start: 20230320

REACTIONS (1)
  - Death [Fatal]

NARRATIVE: CASE EVENT DATE: 20230726
